FAERS Safety Report 4898629-X (Version None)
Quarter: 2006Q1

REPORT INFORMATION
  Report Type: 
  Country: None (occurrence: None)
  Receive Date: 20060130
  Receipt Date: 20060117
  Transmission Date: 20060701
  Serious: Yes (Hospitalization)
  Sender: FDA-Public Use
  Company Number: 220801

PATIENT
  Age: 75 Year
  Sex: Male
  Weight: 82 kg

DRUGS (6)
  1. RITUXIMAB (RITUXIMAB) CONC FOR SOLUTION FOR INFUSION [Suspect]
     Indication: CHRONIC LYMPHOCYTIC LEUKAEMIA
     Dosage: 970 MG, Q28D, INTRAVENOUS
     Route: 042
     Dates: start: 20040512, end: 20040918
  2. FLUDARABINE PHOSPHATE [Suspect]
     Indication: CHRONIC LYMPHOCYTIC LEUKAEMIA
     Dosage: 48 MG, Q28D, INTRAVENOUS
     Route: 042
     Dates: start: 20040512, end: 20040930
  3. CYCLOPHOSPHAMIDE [Suspect]
     Indication: CHRONIC LYMPHOCYTIC LEUKAEMIA
     Dosage: 452 MG, Q28D, INTRAVENOUS
     Route: 042
     Dates: start: 20040512, end: 20040930
  4. PREDNISONE [Concomitant]
  5. VALACYCLOVIR (VALACYCLOVIR) [Concomitant]
  6. OMEPRAZOLE [Concomitant]

REACTIONS (6)
  - ACTIVATED PARTIAL THROMBOPLASTIN TIME PROLONGED [None]
  - GASTRIC HAEMORRHAGE [None]
  - MOUTH HAEMORRHAGE [None]
  - MUCOSAL HAEMORRHAGE [None]
  - PROTHROMBIN TIME PROLONGED [None]
  - THROMBOCYTOPENIA [None]
